FAERS Safety Report 19055703 (Version 1)
Quarter: 2021Q1

REPORT INFORMATION
  Report Type: Spontaneous
  Country: CN (occurrence: CN)
  Receive Date: 20210325
  Receipt Date: 20210325
  Transmission Date: 20210420
  Serious: Yes (Other)
  Sender: FDA-Public Use
  Company Number: CN-SA-2021SA091720

PATIENT
  Age: 44 Year
  Sex: Female

DRUGS (9)
  1. OXALIPLATIN. [Suspect]
     Active Substance: OXALIPLATIN
     Indication: METASTASES TO BONE
  2. OXALIPLATIN. [Suspect]
     Active Substance: OXALIPLATIN
     Indication: METASTASES TO HEART
  3. CAPECITABINE. [Suspect]
     Active Substance: CAPECITABINE
     Indication: METASTASES TO BONE
  4. CAPECITABINE. [Suspect]
     Active Substance: CAPECITABINE
     Indication: METASTASES TO HEART
  5. APATINIB [Suspect]
     Active Substance: APATINIB
     Indication: THYMIC CANCER METASTATIC
  6. APATINIB [Suspect]
     Active Substance: APATINIB
     Indication: METASTASES TO BONE
  7. OXALIPLATIN. [Suspect]
     Active Substance: OXALIPLATIN
     Indication: THYMIC CANCER METASTATIC
     Dosage: DAY 1
  8. CAPECITABINE. [Suspect]
     Active Substance: CAPECITABINE
     Indication: THYMIC CANCER METASTATIC
     Dosage: SIX CYCLES
  9. APATINIB [Suspect]
     Active Substance: APATINIB
     Indication: METASTASES TO HEART

REACTIONS (2)
  - Myelosuppression [Unknown]
  - Radiation oesophagitis [Unknown]
